FAERS Safety Report 23156287 (Version 1)
Quarter: 2023Q4

REPORT INFORMATION
  Report Type: Report from Study
  Country: NL (occurrence: NL)
  Receive Date: 20231107
  Receipt Date: 20231107
  Transmission Date: 20240110
  Serious: Yes (Hospitalization, Other)
  Sender: FDA-Public Use
  Company Number: NL-ABBVIE-5480287

PATIENT
  Age: 48 Year
  Sex: Female

DRUGS (34)
  1. HUMIRA [Suspect]
     Active Substance: ADALIMUMAB
     Indication: Crohn^s disease
     Route: 065
  2. HUMIRA [Suspect]
     Active Substance: ADALIMUMAB
     Route: 065
     Dates: end: 20130412
  3. HUMIRA [Suspect]
     Active Substance: ADALIMUMAB
     Route: 065
     Dates: start: 201211
  4. HYDROCORTISONE [Concomitant]
     Active Substance: HYDROCORTISONE
     Indication: Product used for unknown indication
     Route: 065
     Dates: start: 20150318
  5. TACROLIMUS [Concomitant]
     Active Substance: TACROLIMUS
     Indication: Product used for unknown indication
  6. CALCIUM\CHOLECALCIFEROL [Concomitant]
     Active Substance: CALCIUM\CHOLECALCIFEROL
     Indication: Product used for unknown indication
     Dates: start: 202310
  7. CIPROFLOXACIN HYDROCHLORIDE [Concomitant]
     Active Substance: CIPROFLOXACIN HYDROCHLORIDE
     Indication: Product used for unknown indication
     Dates: start: 2015
  8. XYZAL [Concomitant]
     Active Substance: LEVOCETIRIZINE DIHYDROCHLORIDE
     Indication: Product used for unknown indication
  9. CLEMASTINE FUMARATE [Concomitant]
     Active Substance: CLEMASTINE FUMARATE
     Indication: Product used for unknown indication
     Dosage: DURATION TEXT: 2-3 HOURS
     Dates: start: 20150318
  10. METHOTREXATE [Concomitant]
     Active Substance: METHOTREXATE
     Indication: Product used for unknown indication
     Dosage: DURATION TEXT: SHORT TERM USE
     Dates: start: 2015, end: 20160829
  11. PURINETHOL [Suspect]
     Active Substance: MERCAPTOPURINE
     Indication: Product used for unknown indication
     Route: 065
     Dates: start: 20160930, end: 20161214
  12. PURINETHOL [Suspect]
     Active Substance: MERCAPTOPURINE
     Indication: Product used for unknown indication
     Route: 065
     Dates: start: 201310, end: 2014
  13. ENTOCORT [Concomitant]
     Active Substance: BUDESONIDE
     Indication: Product used for unknown indication
  14. ZINACEF [Concomitant]
     Active Substance: CEFUROXIME SODIUM
     Indication: Product used for unknown indication
  15. METRONIDAZOLE [Concomitant]
     Active Substance: METRONIDAZOLE
     Indication: Product used for unknown indication
     Dosage: DURATION TEXT: SHORT TERM USE
     Dates: start: 2004
  16. METRONIDAZOLE [Concomitant]
     Active Substance: METRONIDAZOLE
     Indication: Product used for unknown indication
     Dates: start: 2010
  17. PLAQUENIL [Concomitant]
     Active Substance: HYDROXYCHLOROQUINE SULFATE
     Indication: Systemic lupus erythematosus
  18. ENTYVIO [Suspect]
     Active Substance: VEDOLIZUMAB
     Indication: Product used for unknown indication
     Route: 065
     Dates: start: 20150318, end: 20160611
  19. ENTYVIO [Suspect]
     Active Substance: VEDOLIZUMAB
     Indication: Product used for unknown indication
     Route: 065
     Dates: start: 20220520, end: 20230919
  20. ENTYVIO [Suspect]
     Active Substance: VEDOLIZUMAB
     Indication: Product used for unknown indication
     Dosage: FREQUENCY TEXT: INDUCTION 0-2-6-10 WEEKS
     Route: 065
  21. PREDNISONE [Concomitant]
     Active Substance: PREDNISONE
     Indication: Product used for unknown indication
     Dates: start: 2020
  22. PREDNISONE [Concomitant]
     Active Substance: PREDNISONE
     Indication: Product used for unknown indication
     Dates: start: 201810
  23. PREDNISONE [Concomitant]
     Active Substance: PREDNISONE
     Indication: Product used for unknown indication
     Dates: start: 2018
  24. PREDNISONE [Concomitant]
     Active Substance: PREDNISONE
     Indication: Product used for unknown indication
     Dates: start: 2015
  25. AZATHIOPRINE [Suspect]
     Active Substance: AZATHIOPRINE
     Indication: Crohn^s disease
     Route: 065
     Dates: start: 2020
  26. AZATHIOPRINE [Suspect]
     Active Substance: AZATHIOPRINE
     Indication: Crohn^s disease
     Route: 065
     Dates: start: 2009, end: 20130412
  27. THIOGUANINE ANHYDROUS [Concomitant]
     Active Substance: THIOGUANINE ANHYDROUS
     Indication: Product used for unknown indication
     Dates: start: 20161219
  28. STELARA [Suspect]
     Active Substance: USTEKINUMAB
     Indication: Product used for unknown indication
     Route: 065
  29. STELARA [Suspect]
     Active Substance: USTEKINUMAB
     Indication: Product used for unknown indication
     Route: 065
     Dates: start: 20170804, end: 20171208
  30. STELARA [Suspect]
     Active Substance: USTEKINUMAB
     Indication: Product used for unknown indication
     Route: 065
     Dates: start: 20170609
  31. ALLOPURINOL [Concomitant]
     Active Substance: ALLOPURINOL
     Indication: Product used for unknown indication
  32. PREDNISOLONE [Concomitant]
     Active Substance: PREDNISOLONE
     Indication: Product used for unknown indication
     Dates: start: 20231011
  33. PREDNISOLONE [Concomitant]
     Active Substance: PREDNISOLONE
     Indication: Product used for unknown indication
     Dosage: 5-10 MG
  34. MESALAMINE [Concomitant]
     Active Substance: MESALAMINE
     Indication: Product used for unknown indication
     Dates: start: 201310, end: 2014

REACTIONS (81)
  - Ileostomy [Unknown]
  - Ileal ulcer [Unknown]
  - Crohn^s disease [Unknown]
  - Enteral nutrition [Unknown]
  - Liver function test abnormal [Unknown]
  - Drug ineffective [Unknown]
  - Histone antibody positive [Unknown]
  - Pyrexia [Unknown]
  - Arthralgia [Not Recovered/Not Resolved]
  - Bauhin^s valve syndrome [Unknown]
  - Ileal ulcer [Unknown]
  - Crohn^s disease [Unknown]
  - Ileostomy [Unknown]
  - Oropharyngeal pain [Unknown]
  - Hepatic enzyme abnormal [Unknown]
  - Diarrhoea [Unknown]
  - Ileal stenosis [Unknown]
  - Muscle rigidity [Unknown]
  - Colitis [Unknown]
  - Large intestinal ulcer [Unknown]
  - Arthropathy [Unknown]
  - Drug ineffective [Unknown]
  - Drug ineffective [Unknown]
  - Gastrointestinal stenosis [Unknown]
  - Lupus-like syndrome [Unknown]
  - Musculoskeletal disorder [Unknown]
  - Gastrointestinal ulcer [Unknown]
  - Nasopharyngitis [Unknown]
  - Crohn^s disease [Unknown]
  - Ileal ulcer [Unknown]
  - Rash [Unknown]
  - Abdominal pain [Unknown]
  - Rash [Unknown]
  - Ileus [Unknown]
  - Headache [Unknown]
  - Drug ineffective [Unknown]
  - Basal cell carcinoma [Unknown]
  - Carpal tunnel syndrome [Unknown]
  - Laboratory test abnormal [Unknown]
  - Nasal congestion [Unknown]
  - Influenza [Unknown]
  - Drug intolerance [Unknown]
  - Hot flush [Unknown]
  - Drug intolerance [Unknown]
  - Limb discomfort [Unknown]
  - Drug ineffective [Unknown]
  - Dry mouth [Unknown]
  - Drug level decreased [Unknown]
  - Sensitive skin [Unknown]
  - Crohn^s disease [Unknown]
  - Drug level decreased [Recovered/Resolved]
  - Large intestine erosion [Unknown]
  - Discomfort [Unknown]
  - Pyrexia [Unknown]
  - Ileocaecal resection [Unknown]
  - Abdominal pain upper [Unknown]
  - Peripheral swelling [Unknown]
  - Aphthous ulcer [Unknown]
  - Drug intolerance [Unknown]
  - Gastrointestinal disorder [Unknown]
  - Diarrhoea [Unknown]
  - Terminal ileitis [Unknown]
  - Fatigue [Unknown]
  - Dry eye [Unknown]
  - Drug intolerance [Unknown]
  - Sjogren^s syndrome [Unknown]
  - Pulmonary embolism [Unknown]
  - Haemangioma of liver [Unknown]
  - Therapeutic product effect incomplete [Unknown]
  - Nausea [Unknown]
  - Hypoaesthesia [Unknown]
  - Pain [Unknown]
  - Pneumonia [Unknown]
  - Stoma closure [Unknown]
  - Eye disorder [Unknown]
  - Dry skin [Unknown]
  - Chills [Unknown]
  - Tendon disorder [Not Recovered/Not Resolved]
  - Pleural effusion [Unknown]
  - Anastomotic ulcer [Unknown]
  - Stenosis [Unknown]

NARRATIVE: CASE EVENT DATE: 20130101
